FAERS Safety Report 7318771-3 (Version None)
Quarter: 2011Q1

REPORT INFORMATION
  Report Type: 
  Country: None (occurrence: None)
  Receive Date: 20110228
  Receipt Date: 20100420
  Transmission Date: 20110831
  Serious: No
  Sender: FDA-Public Use
  Company Number: A0856721A

PATIENT
  Sex: Male

DRUGS (2)
  1. HEART MEDICATION [Concomitant]
  2. IMITREX [Suspect]
     Indication: MIGRAINE
     Route: 058
     Dates: start: 20000401

REACTIONS (1)
  - CARDIAC DISORDER [None]
